FAERS Safety Report 14603323 (Version 1)
Quarter: 2018Q1

REPORT INFORMATION
  Report Type: Spontaneous
  Country: FR (occurrence: FR)
  Receive Date: 20180306
  Receipt Date: 20180306
  Transmission Date: 20180509
  Serious: Yes (Hospitalization)
  Sender: FDA-Public Use
  Company Number: FR-MYLANLABS-2018M1015205

PATIENT
  Age: 50 Year
  Sex: Male

DRUGS (4)
  1. CLOZAPINE MYLAN [Suspect]
     Active Substance: CLOZAPINE
     Indication: PRODUCT USED FOR UNKNOWN INDICATION
     Dosage: UNK
     Dates: start: 2012
  2. CLOZAPINE MYLAN [Suspect]
     Active Substance: CLOZAPINE
     Dosage: 300 MG, QD
     Dates: start: 201801, end: 2018
  3. CLOZAPINE MYLAN [Suspect]
     Active Substance: CLOZAPINE
     Dosage: UNK
     Dates: start: 201710
  4. CLOZAPINE MYLAN [Suspect]
     Active Substance: CLOZAPINE
     Dosage: 800 MG, QD
     Dates: start: 201701

REACTIONS (3)
  - Headache [Unknown]
  - Antipsychotic drug level above therapeutic [Recovering/Resolving]
  - Dizziness [Unknown]

NARRATIVE: CASE EVENT DATE: 201701
